FAERS Safety Report 9887712 (Version 2)
Quarter: 2014Q1

REPORT INFORMATION
  Report Type: Spontaneous
  Country: FI (occurrence: FI)
  Receive Date: 20140211
  Receipt Date: 20140318
  Transmission Date: 20141002
  Serious: Yes (Hospitalization)
  Sender: FDA-Public Use
  Company Number: PHHY2014FI014926

PATIENT
  Age: 73 Year
  Sex: Male

DRUGS (2)
  1. DIOVAN [Suspect]
     Indication: HYPERTENSION
     Dosage: 80 MG, QD
     Route: 048
     Dates: start: 20131129, end: 20131225
  2. PRADAXA [Suspect]
     Indication: ATRIAL FIBRILLATION
     Dosage: 150 MG, BID
     Route: 048
     Dates: start: 20131129, end: 20131225

REACTIONS (6)
  - Erythema multiforme [Recovering/Resolving]
  - Tenderness [Recovering/Resolving]
  - Genital rash [Recovering/Resolving]
  - Paraesthesia [Recovering/Resolving]
  - Rash [Recovering/Resolving]
  - Escherichia bacteraemia [Unknown]
